FAERS Safety Report 8556818-7 (Version None)
Quarter: 2012Q3

REPORT INFORMATION
  Report Type: 
  Country: None (occurrence: None)
  Receive Date: 20120801
  Receipt Date: 20120720
  Transmission Date: 20120928
  Serious: Yes (Hospitalization, Other)
  Sender: FDA-Public Use
  Company Number: FR-BAYER-2012-073658

PATIENT
  Age: 72 Year
  Sex: Female

DRUGS (10)
  1. NEXAVAR [Suspect]
     Dosage: UNK
     Dates: start: 20101101, end: 20120525
  2. LEVOTHYROXINE SODIUM [Concomitant]
     Dosage: 187.5 ?G, QD
     Route: 048
  3. VIALEBEX [Concomitant]
     Dosage: 20 MG, BID
     Route: 048
     Dates: start: 20120604, end: 20120607
  4. LASIX [Concomitant]
     Dosage: 40 MG, QD
     Route: 048
  5. PROPRANOLOL [Concomitant]
     Dosage: 160 MG, QD
     Route: 048
  6. LANTUS [Concomitant]
     Dosage: 8 IU, QD
     Route: 058
  7. OFLOXACIN [Suspect]
     Indication: URINARY TRACT INFECTION
     Dosage: 200 MG, BID
     Route: 048
     Dates: start: 20120523, end: 20120602
  8. FOLIC ACID [Concomitant]
     Dosage: 5 MG, QD
     Route: 048
  9. NOVORAPID [Concomitant]
     Route: 058
  10. POTASSIUM CHLORIDE [Concomitant]
     Dosage: 600 MG, BID
     Route: 048

REACTIONS (4)
  - PANCYTOPENIA [None]
  - VOMITING [None]
  - DIARRHOEA [None]
  - URINARY TRACT INFECTION [None]
